FAERS Safety Report 4442177-8 (Version None)
Quarter: 2004Q3

REPORT INFORMATION
  Report Type: 
  Country: None (occurrence: None)
  Receive Date: 20040903
  Receipt Date: 20040726
  Transmission Date: 20050211
  Serious: Yes (Other)
  Sender: FDA-Public Use
  Company Number: 2004UW15721

PATIENT
  Age: 89 Year
  Sex: Female
  Weight: 65.7716 kg

DRUGS (3)
  1. CRESTOR [Suspect]
     Indication: BLOOD CHOLESTEROL INCREASED
     Dosage: 20 MG HS PO
     Route: 048
  2. DETROL [Concomitant]
  3. ASPIRIN [Concomitant]

REACTIONS (2)
  - PAIN IN EXTREMITY [None]
  - RASH MACULAR [None]
